FAERS Safety Report 9922658 (Version 1)
Quarter: 2014Q1

REPORT INFORMATION
  Report Type: Spontaneous
  Country: US (occurrence: US)
  Receive Date: 20140225
  Receipt Date: 20140225
  Transmission Date: 20141002
  Serious: No
  Sender: FDA-Public Use
  Company Number: US-BRISTOL-MYERS SQUIBB COMPANY-18787606

PATIENT
  Age: 50 Year
  Sex: Female

DRUGS (1)
  1. LISODREN [Suspect]
     Indication: RENAL CANCER METASTATIC

REACTIONS (1)
  - Dysphagia [Unknown]
